FAERS Safety Report 24976631 (Version 1)
Quarter: 2025Q1

REPORT INFORMATION
  Report Type: Spontaneous
  Country: US (occurrence: US)
  Receive Date: 20250217
  Receipt Date: 20250217
  Transmission Date: 20250409
  Serious: No
  Sender: PRASCO
  Company Number: US-Prasco Laboratories-PRAS20250057

PATIENT
  Age: 58 Year
  Sex: Female
  Weight: 48.53 kg

DRUGS (2)
  1. ESTRADIOL [Suspect]
     Active Substance: ESTRADIOL
     Indication: Atrophic vulvovaginitis
     Route: 067
     Dates: end: 202410
  2. ESTRADIOL [Suspect]
     Active Substance: ESTRADIOL
     Indication: Dyspareunia
     Route: 067
     Dates: start: 202309

REACTIONS (3)
  - Pruritus [Recovered/Resolved]
  - Reaction to excipient [Unknown]
  - Off label use [None]
